FAERS Safety Report 17866235 (Version 1)
Quarter: 2020Q2

REPORT INFORMATION
  Report Type: Spontaneous
  Country: RO (occurrence: RO)
  Receive Date: 20200605
  Receipt Date: 20200605
  Transmission Date: 20200714
  Serious: Yes (Hospitalization, Other)
  Sender: FDA-Public Use
  Company Number: RO-BAXTER-2020BAX011577

PATIENT
  Age: 2 Year
  Sex: Female

DRUGS (4)
  1. VINCRISTINE [Suspect]
     Active Substance: VINCRISTINE
     Indication: PLEUROPULMONARY BLASTOMA
     Dosage: CYCLICAL
     Route: 065
     Dates: start: 2014
  2. DACTINOMYCIN [Suspect]
     Active Substance: DACTINOMYCIN
     Indication: PLEUROPULMONARY BLASTOMA
     Dosage: CYCLICAL
     Route: 065
     Dates: start: 2014
  3. HOLOXAN 1G [Suspect]
     Active Substance: IFOSFAMIDE
     Indication: PLEUROPULMONARY BLASTOMA
     Dosage: CYCLICAL
     Route: 065
     Dates: start: 2014
  4. DOXIL [Suspect]
     Active Substance: DOXORUBICIN HYDROCHLORIDE
     Indication: PLEUROPULMONARY BLASTOMA
     Dosage: CYCLICAL
     Route: 065
     Dates: start: 2014

REACTIONS (4)
  - Conjunctivitis [Unknown]
  - Febrile neutropenia [Unknown]
  - Device related thrombosis [Unknown]
  - Cellulitis orbital [Unknown]
